FAERS Safety Report 8238650-7 (Version None)
Quarter: 2012Q1

REPORT INFORMATION
  Report Type: 
  Country: None (occurrence: None)
  Receive Date: 20120309
  Receipt Date: 20100212
  Transmission Date: 20120608
  Serious: Yes (Hospitalization)
  Sender: FDA-Public Use
  Company Number: PHHY2010US08864

PATIENT
  Age: 20 Year
  Sex: Female

DRUGS (1)
  1. EXTAVIA [Suspect]
     Indication: MULTIPLE SCLEROSIS
     Dosage: 0.25 MG, SUBCUTANEOUS
     Route: 058
     Dates: start: 20091028, end: 20091217

REACTIONS (2)
  - SWELLING [None]
  - RASH GENERALISED [None]
